FAERS Safety Report 18845982 (Version 3)
Quarter: 2021Q2

REPORT INFORMATION
  Report Type: Report from Study
  Country: US (occurrence: US)
  Receive Date: 20210203
  Receipt Date: 20210602
  Transmission Date: 20210717
  Serious: Yes (Hospitalization)
  Sender: FDA-Public Use
  Company Number: US-EXELIXIS-CABO-20029690

PATIENT
  Age: 80 Year
  Sex: Male

DRUGS (26)
  1. AMOXICILLIN + CLAV. POTASSIUM [Concomitant]
     Active Substance: AMOXICILLIN\CLAVULANATE POTASSIUM
  2. LOMOTIL [Concomitant]
     Active Substance: ATROPINE SULFATE\DIPHENOXYLATE HYDROCHLORIDE
     Indication: DIARRHOEA
  3. MUCINEX [Concomitant]
     Active Substance: GUAIFENESIN
     Indication: COUGH
  4. NITROSTAT [Concomitant]
     Active Substance: NITROGLYCERIN
     Indication: CHEST PAIN
  5. HYDROCHLOROTHIAZIDE. [Concomitant]
     Active Substance: HYDROCHLOROTHIAZIDE
  6. IMDUR [Concomitant]
     Active Substance: ISOSORBIDE MONONITRATE
  7. OMEPRAZOLE. [Concomitant]
     Active Substance: OMEPRAZOLE
  8. MAGNESIUM LACTATE [Concomitant]
     Active Substance: MAGNESIUM LACTATE
  9. CABOMETYX [Suspect]
     Active Substance: CABOZANTINIB S-MALATE
     Dosage: 60 MG, QOD
  10. VOTRIENT [Concomitant]
     Active Substance: PAZOPANIB HYDROCHLORIDE
  11. METOPROLOL. [Concomitant]
     Active Substance: METOPROLOL
  12. OYSTERCAL D [Concomitant]
  13. BENZONATATE. [Concomitant]
     Active Substance: BENZONATATE
  14. LANTUS [Concomitant]
     Active Substance: INSULIN GLARGINE
  15. DONEPEZIL. [Concomitant]
     Active Substance: DONEPEZIL
  16. FLOVENT HFA [Concomitant]
     Active Substance: FLUTICASONE PROPIONATE
  17. LACTOBACILLUS ACIDOPHILUS [Concomitant]
     Active Substance: LACTOBACILLUS ACIDOPHILUS
  18. CABOMETYX [Suspect]
     Active Substance: CABOZANTINIB S-MALATE
     Indication: RENAL CANCER
     Dosage: 60 MG, QD
     Route: 048
     Dates: start: 202002
  19. CABOMETYX [Suspect]
     Active Substance: CABOZANTINIB S-MALATE
     Dosage: 40 MG, QD
     Route: 048
     Dates: start: 202012, end: 20210525
  20. ATORVASTATIN [Concomitant]
     Active Substance: ATORVASTATIN
  21. PROMETHAZINE [Concomitant]
     Active Substance: PROMETHAZINE HYDROCHLORIDE
  22. TORSEMIDE. [Concomitant]
     Active Substance: TORSEMIDE
  23. PROAIR HFA [Concomitant]
     Active Substance: ALBUTEROL SULFATE
  24. LOSARTAN. [Concomitant]
     Active Substance: LOSARTAN
  25. ZOFRAN [Concomitant]
     Active Substance: ONDANSETRON HYDROCHLORIDE
  26. TRAMADOL. [Concomitant]
     Active Substance: TRAMADOL
     Indication: PAIN

REACTIONS (15)
  - Gastrooesophageal reflux disease [Unknown]
  - Fatigue [Unknown]
  - Malignant neoplasm progression [Unknown]
  - Cough [Unknown]
  - Inappropriate schedule of product administration [Unknown]
  - Off label use [Unknown]
  - Diarrhoea [Recovered/Resolved]
  - Vomiting [Recovered/Resolved]
  - Hiccups [Unknown]
  - Ageusia [Unknown]
  - Nausea [Recovered/Resolved]
  - Asthenia [Unknown]
  - Wrong technique in product usage process [Unknown]
  - Cardiac failure congestive [Unknown]
  - Weight decreased [Recovering/Resolving]

NARRATIVE: CASE EVENT DATE: 20200515
